FAERS Safety Report 7095979-6 (Version None)
Quarter: 2010Q4

REPORT INFORMATION
  Report Type: 
  Country: None (occurrence: None)
  Receive Date: 20101111
  Receipt Date: 20101105
  Transmission Date: 20110411
  Serious: Yes (Hospitalization)
  Sender: FDA-Public Use
  Company Number: US-B.I. PHARMACEUTICALS,INC./RIDGEFIELD-2010-BP-12450BP

PATIENT
  Age: 72 Year
  Sex: Female

DRUGS (4)
  1. SPIRIVA [Suspect]
     Indication: CHRONIC OBSTRUCTIVE PULMONARY DISEASE
     Dosage: 18 MCG
     Route: 055
     Dates: start: 20090101, end: 20101025
  2. SPIRIVA [Suspect]
     Dosage: 18 MCG
     Route: 055
     Dates: start: 20101031
  3. COUMADIN [Concomitant]
     Indication: PROPHYLAXIS
     Dosage: 3 MG
     Route: 048
     Dates: end: 20101104
  4. COUMADIN [Concomitant]
     Dosage: 4 MG
     Route: 048
     Dates: start: 20101105

REACTIONS (4)
  - ARTHRITIS [None]
  - ASTHENIA [None]
  - DIZZINESS [None]
  - DYSPNOEA [None]
